FAERS Safety Report 8615703-2 (Version None)
Quarter: 2012Q3

REPORT INFORMATION
  Report Type: 
  Country: None (occurrence: None)
  Receive Date: 20120823
  Receipt Date: 20120813
  Transmission Date: 20120928
  Serious: Yes (Hospitalization)
  Sender: FDA-Public Use
  Company Number: US-ELI_LILLY_AND_COMPANY-US201207008138

PATIENT
  Sex: Female

DRUGS (2)
  1. FORTEO [Suspect]
     Indication: OSTEOPOROSIS
     Dosage: 20 UG, QD
     Route: 058
     Dates: start: 20120606
  2. FORTEO [Suspect]
     Dosage: 20 UG, QD
     Route: 058
     Dates: start: 20120606

REACTIONS (10)
  - PAIN [None]
  - GASTRITIS [None]
  - PULMONARY HYPERTENSION [None]
  - OESOPHAGITIS [None]
  - THYROID DISORDER [None]
  - BACK PAIN [None]
  - GASTROENTERITIS [None]
  - RENAL PAIN [None]
  - INFLAMMATION [None]
  - NEPHROLITHIASIS [None]
